FAERS Safety Report 5858590-8 (Version None)
Quarter: 2008Q3

REPORT INFORMATION
  Report Type: 
  Country: None (occurrence: None)
  Receive Date: 20080818
  Receipt Date: 20080609
  Transmission Date: 20090109
  Serious: No
  Sender: FDA-Public Use
  Company Number: TPA2008A00796

PATIENT
  Age: 52 Year
  Sex: Female

DRUGS (1)
  1. ROZEREM [Suspect]
     Indication: INSOMNIA
     Dosage: ONCE, PER ORAL
     Route: 048

REACTIONS (2)
  - ANXIETY [None]
  - NAUSEA [None]
